FAERS Safety Report 13594696 (Version 1)
Quarter: 2017Q2

REPORT INFORMATION
  Report Type: Spontaneous
  Country: US (occurrence: US)
  Receive Date: 20170530
  Receipt Date: 20170530
  Transmission Date: 20170830
  Serious: No
  Sender: FDA-Public Use
  Company Number: US-ALARA PHARMACEUTICAL CORPORATION-2021395

PATIENT
  Age: 13 Year
  Sex: Female

DRUGS (1)
  1. LEVO-T [Suspect]
     Active Substance: LEVOTHYROXINE SODIUM

REACTIONS (3)
  - Malaise [Unknown]
  - Vomiting [Unknown]
  - Hypersensitivity [Unknown]
